FAERS Safety Report 4571202-9 (Version None)
Quarter: 2005Q1

REPORT INFORMATION
  Report Type: 
  Country: None (occurrence: None)
  Receive Date: 20050202
  Receipt Date: 20050118
  Transmission Date: 20050727
  Serious: Yes (Other)
  Sender: FDA-Public Use
  Company Number: B0365624A

PATIENT
  Age: 35 Year
  Sex: Female

DRUGS (5)
  1. EPIVIR [Suspect]
     Indication: HIV INFECTION
     Dates: start: 19970701
  2. RETROVIR [Suspect]
     Indication: HIV INFECTION
     Dates: start: 19950101
  3. STAVUDINE [Suspect]
     Indication: HIV INFECTION
     Dates: start: 19970701
  4. INDINAVIR SULFATE (FORMULATION UNKNOWN) (INDINAVIR SULFATE) [Suspect]
     Indication: HIV INFECTION
     Dates: start: 19970701
  5. SAQUINAVIR + RITONAVIR (FORMULATION UNKNOWN) (SAQUINAVIR + RITONAVIR) [Suspect]
     Indication: HIV INFECTION
     Dates: start: 19980701

REACTIONS (4)
  - BODY MASS INDEX DECREASED [None]
  - FACIAL WASTING [None]
  - LIPOATROPHY [None]
  - NEPHROLITHIASIS [None]
